FAERS Safety Report 22231232 (Version 1)
Quarter: 2023Q2

REPORT INFORMATION
  Report Type: Spontaneous
  Country: US (occurrence: US)
  Receive Date: 20230420
  Receipt Date: 20230420
  Transmission Date: 20230721
  Serious: Yes (Other)
  Sender: FDA-Public Use
  Company Number: US-NOVOPROD-1051417

PATIENT
  Sex: Female

DRUGS (3)
  1. OZEMPIC [Suspect]
     Active Substance: SEMAGLUTIDE
     Indication: Diabetes mellitus
     Dosage: UNK
     Route: 058
  2. OZEMPIC [Suspect]
     Active Substance: SEMAGLUTIDE
     Dosage: 1 MG, QW
     Route: 058
  3. DUPIXENT [Suspect]
     Active Substance: DUPILUMAB
     Indication: Product used for unknown indication
     Dosage: 300 MG
     Route: 058

REACTIONS (8)
  - Diabetes mellitus [Unknown]
  - Urinary retention [Recovered/Resolved]
  - Weight increased [Not Recovered/Not Resolved]
  - Enuresis [Unknown]
  - Vulvovaginal erythema [Recovered/Resolved]
  - Vulvovaginal exfoliation [Unknown]
  - Nausea [Unknown]
  - Inappropriate schedule of product administration [Unknown]
